FAERS Safety Report 12771849 (Version 4)
Quarter: 2017Q2

REPORT INFORMATION
  Report Type: Spontaneous
  Country: DK (occurrence: DK)
  Receive Date: 20160922
  Receipt Date: 20170601
  Transmission Date: 20170830
  Serious: Yes (Hospitalization, Other)
  Sender: FDA-Public Use
  Company Number: DK-009507513-1609DNK010673

PATIENT
  Age: 67 Year
  Sex: Female
  Weight: 67 kg

DRUGS (5)
  1. ROPINIROLE. [Concomitant]
     Active Substance: ROPINIROLE
     Indication: PARKINSON^S DISEASE
     Dosage: 18 MG ONCE DAILY AT 6 O^CLOCK
     Dates: start: 20120105
  2. SINEMET DEPOT [Suspect]
     Active Substance: CARBIDOPA\LEVODOPA
     Indication: PARKINSON^S DISEASE
     Dosage: 1 TABLET 3 TIMES DAILY AT 6:00, 11:00 AND 16:00 O^CLOCK
     Route: 048
     Dates: start: 20160324
  3. ELTROXIN [Concomitant]
     Active Substance: LEVOTHYROXINE
     Indication: METABOLIC DISORDER
     Dosage: 100 MICROGRAM, QD AT 6 O^CLOCK
     Dates: start: 1974
  4. SINEMET [Suspect]
     Active Substance: CARBIDOPA\LEVODOPA
     Indication: PARKINSON^S DISEASE
     Dosage: 2 TABLETS AT NIGHT
     Route: 048
     Dates: start: 201605
  5. SINEMET [Suspect]
     Active Substance: CARBIDOPA\LEVODOPA
     Dosage: 1 TABLET DAILY AT 22:00 O^CLOCK
     Route: 048
     Dates: start: 20170516

REACTIONS (4)
  - Movement disorder [Recovering/Resolving]
  - Parkinson^s disease [Unknown]
  - Drug ineffective [Unknown]
  - Incorrect product storage [Unknown]

NARRATIVE: CASE EVENT DATE: 2012
